FAERS Safety Report 19273730 (Version 1)
Quarter: 2021Q2

REPORT INFORMATION
  Report Type: Spontaneous
  Country: US (occurrence: US)
  Receive Date: 20210518
  Receipt Date: 20210518
  Transmission Date: 20210717
  Serious: Yes (Life-Threatening, Hospitalization)
  Sender: FDA-Public Use
  Company Number: None

PATIENT
  Age: 77 Year
  Sex: Male
  Weight: 111 kg

DRUGS (2)
  1. XARELTO [Suspect]
     Active Substance: RIVAROXABAN
     Indication: ATRIAL FIBRILLATION
     Route: 048
  2. RIVAROXABAN [Concomitant]
     Active Substance: RIVAROXABAN
     Dates: end: 20200205

REACTIONS (5)
  - Dysarthria [None]
  - Haemorrhage intracranial [None]
  - Atrial fibrillation [None]
  - Blood pressure increased [None]
  - Hemiparesis [None]

NARRATIVE: CASE EVENT DATE: 20200205
